FAERS Safety Report 5224972-0 (Version None)
Quarter: 2007Q1

REPORT INFORMATION
  Report Type: 
  Country: None (occurrence: None)
  Receive Date: 20070126
  Receipt Date: 20070116
  Transmission Date: 20070707
  Serious: Yes (Hospitalization)
  Sender: FDA-Public Use
  Company Number: GBWYE19817JAN07

PATIENT
  Age: 30 Year
  Sex: Female

DRUGS (4)
  1. EFEXOR (VANLAFAXINE HYDROCHLORIDE, TABLET, 0) [Suspect]
     Dosage: OVERDOSE OF 11 TABLETS OF 75 MG ORAL
     Route: 048
     Dates: start: 20060801
  2. ALCOHOL (ETHANOL, , 0) [Suspect]
     Dates: start: 20060801
  3. CLOZARIL [Suspect]
     Dosage: OVERDOSE OF 1400MG IN 1 DAY ORAL; SEE IMAGE
     Route: 048
     Dates: start: 20051228
  4. CLOZARIL [Suspect]
     Dosage: OVERDOSE OF 1400MG IN 1 DAY ORAL; SEE IMAGE
     Route: 048
     Dates: start: 20060801

REACTIONS (4)
  - AGITATION [None]
  - HYPERTHERMIA MALIGNANT [None]
  - MULTIPLE DRUG OVERDOSE INTENTIONAL [None]
  - SUICIDE ATTEMPT [None]
